FAERS Safety Report 5286594-5 (Version None)
Quarter: 2007Q2

REPORT INFORMATION
  Report Type: 
  Country: None (occurrence: None)
  Receive Date: 20070404
  Receipt Date: 20070328
  Transmission Date: 20071010
  Serious: Yes (Hospitalization)
  Sender: FDA-Public Use
  Company Number: US-GLAXOSMITHKLINE-A0638632B

PATIENT
  Age: 53 Year
  Sex: Female
  Weight: 75 kg

DRUGS (3)
  1. LAPATINIB [Suspect]
     Indication: BREAST CANCER METASTATIC
     Dosage: 1250MG PER DAY
     Route: 048
     Dates: start: 20061130
  2. CAPECITABINE [Suspect]
     Indication: BREAST CANCER METASTATIC
     Dosage: 1650MG TWICE PER DAY
     Route: 048
     Dates: start: 20070125, end: 20070205
  3. LOVENOX [Concomitant]
     Indication: SUPERIOR VENA CAVAL OCCLUSION
     Dosage: 120MG PER DAY
     Route: 058
     Dates: start: 20070205

REACTIONS (6)
  - DIZZINESS [None]
  - DYSPNOEA [None]
  - NASOPHARYNGITIS [None]
  - SWELLING FACE [None]
  - VASODILATATION [None]
  - VENA CAVA THROMBOSIS [None]
